FAERS Safety Report 5565487-X (Version None)
Quarter: 2007Q4

REPORT INFORMATION
  Report Type: 
  Country: None (occurrence: None)
  Receive Date: 20071218
  Receipt Date: 20071206
  Transmission Date: 20080405
  Serious: Yes (Other)
  Sender: FDA-Public Use
  Company Number: AT-PFIZER INC-2007103029

PATIENT
  Age: 50 Year
  Sex: Male

DRUGS (5)
  1. LYRICA [Suspect]
     Indication: PAIN
     Route: 048
  2. OXYCONTIN [Concomitant]
     Dosage: TEXT:40-20-40 DAILY
     Route: 048
  3. VOLTAREN [Concomitant]
     Dosage: DAILY DOSE:100MG
     Route: 048
  4. PANTOPRAZOL [Concomitant]
     Route: 048
  5. THROMBO ASS [Concomitant]
     Route: 048

REACTIONS (2)
  - AGGRESSION [None]
  - AGITATION [None]
